FAERS Safety Report 4619243-7 (Version None)
Quarter: 2005Q1

REPORT INFORMATION
  Report Type: 
  Country: None (occurrence: None)
  Receive Date: 20050325
  Receipt Date: 20050317
  Transmission Date: 20050727
  Serious: Yes (Hospitalization)
  Sender: FDA-Public Use
  Company Number: FR-BRISTOL-MYERS SQUIBB COMPANY-12909529

PATIENT
  Age: 68 Year
  Sex: Female

DRUGS (8)
  1. ENDOXAN [Suspect]
     Indication: NON-HODGKIN'S LYMPHOMA
     Dosage: START DATE:  21-APR-2004
     Route: 042
     Dates: start: 20041007, end: 20041007
  2. METHOTREXATE [Suspect]
     Indication: NON-HODGKIN'S LYMPHOMA
     Dosage: START DATE:  21-APR-2004
     Route: 038
     Dates: start: 20041007, end: 20041007
  3. ADRIAMYCIN PFS [Suspect]
     Indication: NON-HODGKIN'S LYMPHOMA
     Dosage: START DATE:  21-APR-2004
     Route: 042
     Dates: start: 20041007, end: 20041007
  4. ARACYTINE [Suspect]
     Indication: NON-HODGKIN'S LYMPHOMA
     Dosage: START DATE:  21-APR-2004
     Route: 038
     Dates: start: 20041007, end: 20041007
  5. ONCOVIN [Suspect]
     Indication: NON-HODGKIN'S LYMPHOMA
     Dosage: START DATE:  21-APR-2004
     Route: 042
     Dates: start: 20041007, end: 20041007
  6. PREDNISONE [Suspect]
     Indication: NON-HODGKIN'S LYMPHOMA
     Dosage: START DATE:  21-APR-2004
     Route: 042
     Dates: start: 20041007, end: 20041007
  7. RITUXIMAB [Suspect]
     Indication: NON-HODGKIN'S LYMPHOMA
     Dosage: START DATE:  21-APR-2004
     Route: 042
     Dates: start: 20041007, end: 20041007
  8. DEPO-MEDROL [Suspect]
     Indication: NON-HODGKIN'S LYMPHOMA
     Dosage: START DATE:  21-APR-2004
     Route: 038
     Dates: start: 20041007, end: 20041007

REACTIONS (4)
  - BALANCE DISORDER [None]
  - CEREBELLAR ATROPHY [None]
  - CEREBRAL ATROPHY [None]
  - PERIPHERAL SENSORY NEUROPATHY [None]
